FAERS Safety Report 7793742-1 (Version None)
Quarter: 2011Q4

REPORT INFORMATION
  Report Type: 
  Country: None (occurrence: None)
  Receive Date: 20111003
  Receipt Date: 20110926
  Transmission Date: 20120403
  Serious: Yes (Death)
  Sender: FDA-Public Use
  Company Number: US-GILEAD-2011-0044391

PATIENT

DRUGS (3)
  1. ADCIRCA [Concomitant]
  2. LETAIRIS [Suspect]
     Indication: PRODUCT USED FOR UNKNOWN INDICATION
     Dosage: 10 MG, UNK
     Route: 048
     Dates: start: 20110321, end: 20110926
  3. EPOPROSTENOL SODIUM [Concomitant]

REACTIONS (1)
  - DEATH [None]
